FAERS Safety Report 12769656 (Version 1)
Quarter: 2016Q3

REPORT INFORMATION
  Report Type: Spontaneous
  Country: DE (occurrence: DE)
  Receive Date: 20160922
  Receipt Date: 20160922
  Transmission Date: 20161109
  Serious: Yes (Other)
  Sender: FDA-Public Use
  Company Number: DE-AMGEN-DEUSP2016077803

PATIENT
  Age: 52 Year
  Sex: Female

DRUGS (9)
  1. VIGANTOLETTEN [Concomitant]
     Active Substance: CHOLECALCIFEROL
     Dosage: 1 DF, DAILY
  2. EXFORGE [Concomitant]
     Active Substance: AMLODIPINE BESYLATE\VALSARTAN
     Dosage: 5 MG, DAILY
  3. TILIDIN [Concomitant]
     Active Substance: NALOXONE HYDROCHLORIDE\TILIDINE HYDROCHLORIDE
     Dosage: 50 MG, DAILY
  4. ESOMEPRAZOLE [Concomitant]
     Active Substance: ESOMEPRAZOLE
     Dosage: 20 MG, DAILY
  5. NOVALGIN [Concomitant]
     Active Substance: METAMIZOLE SODIUM
     Dosage: 500 MG, DAILY
  6. BISOPROLOL [Concomitant]
     Active Substance: BISOPROLOL
     Dosage: 2.5 MG, 1X/DAY
  7. ENBREL [Suspect]
     Active Substance: ETANERCEPT
     Indication: PUSTULAR PSORIASIS
     Dosage: 50 MG, WEEKLY
     Route: 058
     Dates: start: 20130806
  8. MIRTAZAPIN [Concomitant]
     Active Substance: MIRTAZAPINE
     Dosage: 30 MG, DAILY
  9. FOLIC ACID. [Concomitant]
     Active Substance: FOLIC ACID
     Dosage: 5 MG, DAILY

REACTIONS (6)
  - Product use issue [Unknown]
  - Immunosuppression [Not Recovered/Not Resolved]
  - Hypersensitivity vasculitis [Not Recovered/Not Resolved]
  - Injection site reaction [Not Recovered/Not Resolved]
  - Petechiae [Not Recovered/Not Resolved]
  - Injection site induration [Not Recovered/Not Resolved]

NARRATIVE: CASE EVENT DATE: 20130806
